FAERS Safety Report 8878866 (Version 1)
Quarter: 2012Q4

REPORT INFORMATION
  Report Type: 
  Country: CH (occurrence: CH)
  Receive Date: 20121026
  Receipt Date: 20121026
  Transmission Date: 20130627
  Serious: Yes (Other)
  Sender: FDA-Public Use
  Company Number: CH-ROCHE-1147367

PATIENT
  Age: 23 Year
  Sex: Female

DRUGS (4)
  1. RIBAVIRIN [Suspect]
     Indication: HEPATITIS C
     Dosage: drug withdrawn
     Route: 064
     Dates: end: 201109
  2. UTROGESTAN [Concomitant]
     Route: 064
     Dates: start: 20120403
  3. METHADONE [Concomitant]
     Route: 064
  4. FOLIC ACID [Concomitant]
     Route: 064

REACTIONS (2)
  - Abortion spontaneous [Unknown]
  - Exposure during pregnancy [Unknown]
